FAERS Safety Report 18676220 (Version 1)
Quarter: 2020Q4

REPORT INFORMATION
  Report Type: Spontaneous
  Country: GB (occurrence: GB)
  Receive Date: 20201229
  Receipt Date: 20201229
  Transmission Date: 20210114
  Serious: Yes (Congenital Anomaly)
  Sender: FDA-Public Use
  Company Number: NVSC2020GB336174

PATIENT
  Age: 3 Year
  Sex: Male

DRUGS (1)
  1. ONDANSETRON [Suspect]
     Active Substance: ONDANSETRON
     Indication: FOETAL EXPOSURE DURING PREGNANCY
     Dosage: UNK (MATERNAL DOSE: 1 DF QD) (I CAN^T REMEMBER EXACTLY BUT AT LEAST ONE TABLET A DAY)
     Route: 064
     Dates: start: 201004

REACTIONS (3)
  - Dental caries [Unknown]
  - Tooth demineralisation [Recovered/Resolved]
  - Foetal exposure during pregnancy [Unknown]
